FAERS Safety Report 10169996 (Version 1)
Quarter: 2014Q2

REPORT INFORMATION
  Report Type: Spontaneous
  Country: GB (occurrence: GB)
  Receive Date: 20140513
  Receipt Date: 20140513
  Transmission Date: 20141212
  Serious: Yes (Other)
  Sender: FDA-Public Use
  Company Number: PHHY2014GB056379

PATIENT
  Sex: 0

DRUGS (1)
  1. TESTOSTERONE [Suspect]

REACTIONS (2)
  - Intracranial pressure increased [Unknown]
  - Drug level increased [Unknown]
